FAERS Safety Report 4424960-8 (Version None)
Quarter: 2004Q3

REPORT INFORMATION
  Report Type: 
  Country: None (occurrence: None)
  Receive Date: 20040813
  Receipt Date: 20030822
  Transmission Date: 20050211
  Serious: Yes (Other)
  Sender: FDA-Public Use
  Company Number: PHHO2003US10780

PATIENT
  Age: 21 Year
  Sex: Female

DRUGS (2)
  1. TEGASEROD (HTF-919) VS PLACEBO [Suspect]
     Indication: GASTROOESOPHAGEAL REFLUX DISEASE
     Dosage: +PLACEBO 2MG BID
     Route: 048
  2. ACETAMINOPHEN [Concomitant]

REACTIONS (2)
  - ABORTION INDUCED [None]
  - DRUG EXPOSURE DURING PREGNANCY [None]
